FAERS Safety Report 7515574-1 (Version None)
Quarter: 2011Q2

REPORT INFORMATION
  Report Type: 
  Country: None (occurrence: None)
  Receive Date: 20110601
  Receipt Date: 20100624
  Transmission Date: 20111010
  Serious: No
  Sender: FDA-Public Use
  Company Number: US-PFIZER INC-2010079812

PATIENT
  Sex: Female
  Weight: 77.551 kg

DRUGS (12)
  1. VASOTEC [Concomitant]
     Dosage: UNK, 2X/DAY
  2. AMBIEN [Concomitant]
     Dosage: UNK, 1X/DAY
  3. KLONOPIN [Concomitant]
     Dosage: UNK
  4. LASIX [Concomitant]
     Dosage: UNK
  5. CHANTIX [Suspect]
     Indication: SMOKING CESSATION THERAPY
     Dosage: 0.5 MG, 1X/DAY
     Route: 048
     Dates: start: 20100618, end: 20100618
  6. METFORMIN [Concomitant]
     Indication: BLOOD GLUCOSE INCREASED
     Dosage: UNK, 2X/DAY
  7. MOBIC [Concomitant]
     Dosage: UNK, 1X/DAY
  8. PLAVIX [Concomitant]
     Dosage: 75 MG, 1X/DAY
  9. POTASSIUM [Concomitant]
     Dosage: UNK
  10. MIRAPEX [Concomitant]
     Dosage: UNK, 2X/DAY
  11. XANAX [Concomitant]
     Dosage: UNK
  12. PROZAC [Concomitant]
     Dosage: UNK

REACTIONS (2)
  - MALAISE [None]
  - ABDOMINAL DISCOMFORT [None]
